FAERS Safety Report 22969505 (Version 2)
Quarter: 2023Q4

REPORT INFORMATION
  Report Type: Spontaneous
  Country: US (occurrence: US)
  Receive Date: 20230922
  Receipt Date: 20231106
  Transmission Date: 20240109
  Serious: Yes (Other)
  Sender: FDA-Public Use
  Company Number: US-TAIHOP-2023-007822

PATIENT
  Age: 69 Year
  Sex: Female

DRUGS (1)
  1. LONSURF [Suspect]
     Active Substance: TIPIRACIL HYDROCHLORIDE\TRIFLURIDINE
     Indication: Appendix cancer
     Dosage: CYCLE 1
     Route: 048
     Dates: start: 20230904

REACTIONS (4)
  - Haematochezia [Unknown]
  - Inappropriate schedule of product administration [Unknown]
  - White blood cell count decreased [Recovering/Resolving]
  - Bone pain [Unknown]

NARRATIVE: CASE EVENT DATE: 20230909
